FAERS Safety Report 25172735 (Version 4)
Quarter: 2025Q3

REPORT INFORMATION
  Report Type: Spontaneous
  Country: US (occurrence: US)
  Receive Date: 20250408
  Receipt Date: 20250825
  Transmission Date: 20251021
  Serious: No
  Sender: MERCK SHARP & DOHME LLC
  Company Number: US-009507513-2265114

PATIENT
  Age: 43 Year
  Sex: Male
  Weight: 92.7 kg

DRUGS (21)
  1. WINREVAIR [Suspect]
     Active Substance: SOTATERCEPT-CSRK
     Indication: Product used for unknown indication
  2. WINREVAIR [Suspect]
     Active Substance: SOTATERCEPT-CSRK
  3. WINREVAIR [Suspect]
     Active Substance: SOTATERCEPT-CSRK
  4. WINREVAIR [Suspect]
     Active Substance: SOTATERCEPT-CSRK
  5. DILANTIN [Concomitant]
     Active Substance: PHENYTOIN
  6. PROAIR HFA [Concomitant]
     Active Substance: ALBUTEROL SULFATE
  7. XARELTO [Concomitant]
     Active Substance: RIVAROXABAN
  8. POTASSIUM CHLORIDE [Concomitant]
     Active Substance: POTASSIUM CHLORIDE
  9. Tizanidine HCL (Tizanidine hydrochloride) [Concomitant]
  10. LASIX [Concomitant]
     Active Substance: FUROSEMIDE
  11. OMEPRAZOLE [Concomitant]
     Active Substance: OMEPRAZOLE
  12. LETAIRIS [Concomitant]
     Active Substance: AMBRISENTAN
  13. ADCIRCA [Concomitant]
     Active Substance: TADALAFIL
  14. VENLAFAXINE HCL [Concomitant]
     Active Substance: VENLAFAXINE HYDROCHLORIDE
  15. OXYGEN [Concomitant]
     Active Substance: OXYGEN
  16. AMIODARONE HYDROCHLORIDE [Concomitant]
     Active Substance: AMIODARONE HYDROCHLORIDE
  17. Pramipexole dihydrochloride (Pramipexole dihydrochloride) [Concomitant]
  18. Butalbital, acetaminophen + Caffeine (Butalbital, Caffeine, Paracet... [Concomitant]
  19. GABAPENTIN [Concomitant]
     Active Substance: GABAPENTIN
  20. DOXYCYCLINE HYCLATE [Concomitant]
     Active Substance: DOXYCYCLINE HYCLATE
  21. HYDROCODONE BITARTRATE AND ACETAMINOPHEN [Concomitant]
     Active Substance: ACETAMINOPHEN\HYDROCODONE BITARTRATE

REACTIONS (5)
  - Haemoptysis [Unknown]
  - Product dose omission issue [Unknown]
  - Device issue [Unknown]
  - Device leakage [Unknown]
  - Wrong technique in device usage process [Unknown]

NARRATIVE: CASE EVENT DATE: 20250311
